FAERS Safety Report 11013760 (Version 2)
Quarter: 2015Q2

REPORT INFORMATION
  Report Type: Spontaneous
  Country: US (occurrence: US)
  Receive Date: 20150412
  Receipt Date: 20150526
  Transmission Date: 20150821
  Serious: Yes (Other)
  Sender: FDA-Public Use
  Company Number: US-JNJFOC-20130801428

PATIENT

DRUGS (5)
  1. PANCRELIPASE. [Suspect]
     Active Substance: PANCRELIPASE
     Indication: PANCREATIC DISORDER
     Route: 065
  2. PANCRELIPASE. [Suspect]
     Active Substance: PANCRELIPASE
     Indication: PANCREATIC DISORDER
     Route: 065
  3. PANCRELIPASE. [Suspect]
     Active Substance: PANCRELIPASE
     Indication: CYSTIC FIBROSIS
     Route: 065
  4. PANCRELIPASE. [Suspect]
     Active Substance: PANCRELIPASE
     Indication: CYSTIC FIBROSIS
     Route: 065
  5. MELOXICAM. [Suspect]
     Active Substance: MELOXICAM
     Indication: PRODUCT USED FOR UNKNOWN INDICATION
     Route: 065

REACTIONS (1)
  - Intestinal obstruction [Unknown]
